FAERS Safety Report 7928100-X (Version None)
Quarter: 2011Q4

REPORT INFORMATION
  Report Type: 
  Country: None (occurrence: None)
  Receive Date: 20111118
  Receipt Date: 20111114
  Transmission Date: 20120403
  Serious: Yes (Other)
  Sender: FDA-Public Use
  Company Number: FR-GLAXOSMITHKLINE-B0762526A

PATIENT
  Sex: Female

DRUGS (2)
  1. ZANTAC [Suspect]
     Indication: GASTRIC ULCER
     Dosage: 300MG UNKNOWN
     Route: 048
     Dates: start: 20111001
  2. ATORVASTATIN CALCIUM [Concomitant]
     Route: 065

REACTIONS (3)
  - FEELING HOT [None]
  - ALOPECIA [None]
  - VASCULITIS [None]
